FAERS Safety Report 9266355 (Version 1)
Quarter: 2013Q2

REPORT INFORMATION
  Report Type: Spontaneous
  Country: US (occurrence: US)
  Receive Date: 20130502
  Receipt Date: 20130502
  Transmission Date: 20140414
  Serious: No
  Sender: FDA-Public Use
  Company Number: US-BIOGENIDEC-2013BI037931

PATIENT
  Age: 48 Year
  Sex: Female

DRUGS (2)
  1. AVONEX [Suspect]
     Indication: MULTIPLE SCLEROSIS
     Route: 030
     Dates: start: 20120724, end: 201301
  2. AVONEX [Suspect]
     Indication: MULTIPLE SCLEROSIS
     Route: 030
     Dates: start: 201303

REACTIONS (6)
  - Drug dose omission [Recovered/Resolved]
  - Injection site bruising [Recovered/Resolved]
  - Hot flush [Recovered/Resolved]
  - Loss of consciousness [Recovered/Resolved]
  - Foot fracture [Recovered/Resolved]
  - Fall [Recovered/Resolved]
